FAERS Safety Report 9369308 (Version 1)
Quarter: 2013Q2

REPORT INFORMATION
  Report Type: Spontaneous
  Country: CO (occurrence: CO)
  Receive Date: 20130626
  Receipt Date: 20130626
  Transmission Date: 20140414
  Serious: Yes (Hospitalization)
  Sender: FDA-Public Use
  Company Number: CO-AMGEN-COLSP2013023102

PATIENT
  Age: 57 Year
  Sex: Female

DRUGS (11)
  1. ENBREL [Suspect]
     Indication: RHEUMATOID ARTHRITIS
     Dosage: 50 MG, WEEKLY
     Route: 058
     Dates: start: 2011, end: 201303
  2. ENBREL [Suspect]
     Dosage: 50 MG, QWK
     Route: 058
     Dates: start: 201303, end: 201305
  3. ENALAPRIL [Concomitant]
     Indication: HYPERTENSION
     Dosage: 20 MG, 2X/DAY
     Route: 048
     Dates: start: 2003
  4. PREDNISOLONE [Concomitant]
     Indication: RHEUMATOID ARTHRITIS
     Dosage: UNK, QD
     Route: 048
     Dates: start: 2003
  5. METHOTREXATE [Concomitant]
     Indication: RHEUMATOID ARTHRITIS
     Dosage: 2.5 MG, 6 TABLETS WEEKLY
     Route: 048
     Dates: start: 2011
  6. FOLIC ACID [Concomitant]
     Indication: RHEUMATOID ARTHRITIS
     Dosage: 1 MG, 1X/DAY
     Route: 048
     Dates: start: 2011
  7. ACETAMINOPHEN [Concomitant]
     Indication: ARTHRALGIA
     Dosage: AS NECESSARY
  8. ACETAMINOPHEN [Concomitant]
     Indication: PYREXIA
     Dosage: UNK
  9. NAPROXEN [Concomitant]
     Indication: ARTHRALGIA
     Dosage: UNK
  10. NAPROXEN [Concomitant]
     Indication: PYREXIA
     Dosage: UNK
  11. FLUIMUCIL [Concomitant]
     Indication: INFLUENZA
     Dosage: UNK

REACTIONS (2)
  - Pyrexia [Unknown]
  - Influenza [Not Recovered/Not Resolved]
